FAERS Safety Report 21627555 (Version 2)
Quarter: 2023Q4

REPORT INFORMATION
  Report Type: Spontaneous
  Country: US (occurrence: US)
  Receive Date: 20221122
  Receipt Date: 20231212
  Transmission Date: 20240110
  Serious: No
  Sender: FDA-Public Use
  Company Number: US-GLENMARK PHARMACEUTICALS-2022GMK076083

PATIENT

DRUGS (2)
  1. BETAMETHASONE DIPROPIONATE\CLOTRIMAZOLE [Suspect]
     Active Substance: BETAMETHASONE DIPROPIONATE\CLOTRIMAZOLE
     Indication: Fungal infection
     Dosage: UNK, BID
     Route: 061
     Dates: start: 20221017
  2. MONISTAT [Concomitant]
     Active Substance: MICONAZOLE NITRATE
     Indication: Fungal infection
     Dosage: UNK
     Route: 065

REACTIONS (2)
  - Erythema [Unknown]
  - Accidental exposure to product [Unknown]

NARRATIVE: CASE EVENT DATE: 20221017
